FAERS Safety Report 5762138-6 (Version None)
Quarter: 2008Q2

REPORT INFORMATION
  Report Type: 
  Country: None (occurrence: None)
  Receive Date: 20080604
  Receipt Date: 20080521
  Transmission Date: 20081010
  Serious: Yes (Hospitalization)
  Sender: FDA-Public Use
  Company Number: 8030060

PATIENT
  Age: 17 Year
  Sex: Male
  Weight: 66 kg

DRUGS (4)
  1. KEPPRA [Suspect]
     Indication: EPILEPSY
     Dosage: 2250 MG 2/D PO
     Route: 048
     Dates: start: 20060101
  2. ZONISAMID [Suspect]
     Indication: EPILEPSY
     Dosage: 100 MG 2/D PO
     Route: 048
     Dates: start: 20071101, end: 20080123
  3. ZONISAMID [Suspect]
     Indication: EPILEPSY
     Dosage: 150 MG 2/D PO
     Route: 048
     Dates: start: 20080124, end: 20080201
  4. ZONISAMID [Suspect]
     Indication: EPILEPSY
     Dosage: 100 MG 2/D PO
     Route: 048
     Dates: start: 20080201

REACTIONS (6)
  - DRUG INTERACTION [None]
  - FEELING ABNORMAL [None]
  - HEMICEPHALALGIA [None]
  - NYSTAGMUS [None]
  - SOMNOLENCE [None]
  - VISUAL DISTURBANCE [None]
